FAERS Safety Report 15434944 (Version 1)
Quarter: 2018Q3

REPORT INFORMATION
  Report Type: Spontaneous
  Country: US (occurrence: US)
  Receive Date: 20180927
  Receipt Date: 20180927
  Transmission Date: 20181010
  Serious: Yes (Hospitalization)
  Sender: FDA-Public Use
  Company Number: US-PFIZER INC-2018376709

PATIENT
  Age: 46 Year
  Sex: Female

DRUGS (6)
  1. TAXOL [Suspect]
     Active Substance: PACLITAXEL
     Indication: BREAST CANCER METASTATIC
     Dosage: 180 MG/M2, CYCLIC (DAY 1, CONTINUOUS INFUSION OVER 72 HOURS)
     Route: 041
     Dates: start: 19910923
  2. G?CSF [Suspect]
     Active Substance: GRANULOCYTE COLONY-STIMULATING FACTOR NOS
     Indication: BREAST CANCER METASTATIC
     Dosage: 10 UG/KG, DAILY
     Route: 058
     Dates: start: 19910926, end: 19911007
  3. TAXOL [Suspect]
     Active Substance: PACLITAXEL
     Dosage: 160 MG/M2, CYCLIC
     Route: 041
     Dates: start: 1991
  4. DOXORUBICIN HCL [Suspect]
     Active Substance: DOXORUBICIN HYDROCHLORIDE
     Dosage: 60 MG/M2, CYCLIC
     Route: 041
     Dates: start: 1991
  5. DOXORUBICIN HCL [Suspect]
     Active Substance: DOXORUBICIN HYDROCHLORIDE
     Dosage: 45 MG/M2, CYCLIC (CYCLE 3)
     Route: 041
     Dates: start: 1991
  6. DOXORUBICIN HCL [Suspect]
     Active Substance: DOXORUBICIN HYDROCHLORIDE
     Indication: BREAST CANCER METASTATIC
     Dosage: 75 MG/M2, CYCLIC, (DAY 1, CONTINUOUS INFUSION OVER 72 HOURS)
     Route: 041
     Dates: start: 19910923

REACTIONS (1)
  - Neutropenic colitis [Recovered/Resolved]

NARRATIVE: CASE EVENT DATE: 19910930
